FAERS Safety Report 8011191-8 (Version None)
Quarter: 2011Q4

REPORT INFORMATION
  Report Type: 
  Country: None (occurrence: None)
  Receive Date: 20111228
  Receipt Date: 20111220
  Transmission Date: 20120403
  Serious: Yes (Hospitalization)
  Sender: FDA-Public Use
  Company Number: FR-NOVOPROD-341832

PATIENT

DRUGS (6)
  1. DIAMICRON [Concomitant]
     Dosage: UNK
     Route: 048
  2. VICTOZA [Suspect]
     Indication: TYPE 2 DIABETES MELLITUS
     Dosage: 1.8 MG, QD
     Route: 058
     Dates: start: 20111103, end: 20111203
  3. FORADIL [Concomitant]
     Dosage: UNK
     Route: 055
  4. XYZAL [Concomitant]
     Dosage: UNK
     Route: 048
  5. BECLOMETHASONE DIPROPIONATE [Concomitant]
     Dosage: UNK
     Route: 055
  6. SINGULAIR [Concomitant]
     Dosage: UNK
     Route: 048

REACTIONS (1)
  - PANCREATITIS ACUTE [None]
